FAERS Safety Report 5712411-2 (Version None)
Quarter: 2008Q2

REPORT INFORMATION
  Report Type: 
  Country: None (occurrence: None)
  Receive Date: 20080422
  Receipt Date: 20080409
  Transmission Date: 20081010
  Serious: Yes (Hospitalization, Other)
  Sender: FDA-Public Use
  Company Number: PHBS2008JP03240

PATIENT
  Age: 55 Year
  Sex: Male
  Weight: 44.6 kg

DRUGS (13)
  1. GABALON [Suspect]
     Indication: MUSCLE SPASTICITY
     Dosage: 153 UG, QD
     Route: 037
     Dates: start: 20060823, end: 20061005
  2. GABALON [Suspect]
     Dosage: 122.4 UG, QD
     Route: 037
     Dates: start: 20061005
  3. CELESTAMINE TAB [Concomitant]
  4. THEOLONG [Concomitant]
  5. SINGULAIR [Concomitant]
  6. MUCODYNE [Concomitant]
     Dosage: 3 DF, UNK
     Route: 048
  7. LAMISIL [Suspect]
     Indication: ONYCHOMYCOSIS
     Dosage: 125 MG/DAY
     Route: 065
     Dates: start: 20060809
  8. DIAZEPAM [Concomitant]
     Dates: start: 20060908, end: 20061002
  9. ARTANE [Concomitant]
     Dosage: 3 DF, UNK
     Route: 048
     Dates: start: 20060908, end: 20061002
  10. GASTER D [Concomitant]
     Dosage: 2 DF, UNK
     Dates: start: 20060908, end: 20061002
  11. PANSPORIN [Concomitant]
     Indication: PYREXIA
     Dates: start: 20061002
  12. MADOPAR [Concomitant]
     Dosage: 1.5 DF, UNK
     Route: 048
     Dates: start: 20060908, end: 20061002
  13. MAGMITT [Concomitant]
     Dosage: 3 DF, UNK
     Route: 048
     Dates: start: 20060908, end: 20061002

REACTIONS (14)
  - AFFECT LABILITY [None]
  - AGGRESSION [None]
  - AGITATION [None]
  - ALANINE AMINOTRANSFERASE INCREASED [None]
  - ASPARTATE AMINOTRANSFERASE INCREASED [None]
  - BLOOD ALKALINE PHOSPHATASE INCREASED [None]
  - BLOOD CHOLINESTERASE DECREASED [None]
  - BLOOD LACTATE DEHYDROGENASE INCREASED [None]
  - GAMMA-GLUTAMYLTRANSFERASE INCREASED [None]
  - HEPATIC FUNCTION ABNORMAL [None]
  - LEUKOCYTE ALKALINE PHOSPHATASE INCREASED [None]
  - MUSCULAR WEAKNESS [None]
  - PYREXIA [None]
  - SPEECH DISORDER [None]
